FAERS Safety Report 21132335 (Version 1)
Quarter: 2022Q3

REPORT INFORMATION
  Report Type: Spontaneous
  Country: JP (occurrence: JP)
  Receive Date: 20220726
  Receipt Date: 20220726
  Transmission Date: 20221027
  Serious: Yes (Hospitalization, Other)
  Sender: FDA-Public Use
  Company Number: JP-MSD-2207JPN002182J

PATIENT
  Age: 78 Year
  Sex: Male

DRUGS (1)
  1. KEYTRUDA [Suspect]
     Active Substance: PEMBROLIZUMAB
     Indication: Lung adenocarcinoma
     Route: 041

REACTIONS (4)
  - Adrenocorticotropic hormone deficiency [Unknown]
  - Immune-mediated hypothyroidism [Unknown]
  - Hyponatraemia [Recovering/Resolving]
  - Pruritus [Unknown]
